FAERS Safety Report 8862950 (Version 1)
Quarter: 2012Q4

REPORT INFORMATION
  Report Type: 
  Country: JP (occurrence: JP)
  Receive Date: 20121026
  Receipt Date: 20121026
  Transmission Date: 20130627
  Serious: Yes (Hospitalization)
  Sender: FDA-Public Use
  Company Number: JP-BRISTOL-MYERS SQUIBB COMPANY-17055948

PATIENT
  Age: 56 Year
  Sex: Female

DRUGS (2)
  1. TAXOL INJ [Suspect]
     Indication: BREAST CANCER
     Route: 041
     Dates: start: 20120528, end: 20120827
  2. HERCEPTIN [Concomitant]
     Dates: start: 20120528, end: 20120919

REACTIONS (1)
  - Drug-induced liver injury [Recovered/Resolved]
